FAERS Safety Report 20755941 (Version 1)
Quarter: 2022Q2

REPORT INFORMATION
  Report Type: Report from Study
  Country: US (occurrence: US)
  Receive Date: 20220427
  Receipt Date: 20220427
  Transmission Date: 20220720
  Serious: Yes (Hospitalization)
  Sender: FDA-Public Use
  Company Number: US-HLS-202200312

PATIENT
  Age: 65 Year
  Sex: Female

DRUGS (1)
  1. CLOZAPINE [Suspect]
     Active Substance: CLOZAPINE
     Indication: Product used for unknown indication
     Dosage: DISCHARGE DOSE :100MG DAILY
     Route: 065

REACTIONS (2)
  - Neutrophil count increased [Unknown]
  - Hip fracture [Unknown]

NARRATIVE: CASE EVENT DATE: 20220323
